FAERS Safety Report 5041714-2 (Version None)
Quarter: 2006Q2

REPORT INFORMATION
  Report Type: 
  Country: None (occurrence: None)
  Receive Date: 20060630
  Receipt Date: 20060622
  Transmission Date: 20061013
  Serious: Yes (Other)
  Sender: FDA-Public Use
  Company Number: 2006079823

PATIENT
  Age: 17 Year
  Sex: Female
  Weight: 45.3597 kg

DRUGS (3)
  1. MEDROXYPROGESTERONE [Suspect]
     Indication: CONTRACEPTION
     Dosage: 150 MG (150 MG, FIRST INJECTION), INTRAMUSCULAR
     Route: 030
     Dates: start: 20060622, end: 20060622
  2. DIFLUCAN [Concomitant]
  3. METRONIDAZOLE [Concomitant]

REACTIONS (4)
  - BLOOD PRESSURE DECREASED [None]
  - HEART RATE INCREASED [None]
  - INJECTION SITE PAIN [None]
  - THERAPEUTIC RESPONSE UNEXPECTED WITH DRUG SUBSTITUTION [None]
